FAERS Safety Report 15983970 (Version 1)
Quarter: 2019Q1

REPORT INFORMATION
  Report Type: Report from Study
  Country: IN (occurrence: IN)
  Receive Date: 20190220
  Receipt Date: 20190220
  Transmission Date: 20190418
  Serious: Yes (Hospitalization, Other)
  Sender: FDA-Public Use
  Company Number: IN-ROCHE-2265268

PATIENT
  Age: 43 Year
  Sex: Female

DRUGS (1)
  1. PERJETA [Suspect]
     Active Substance: PERTUZUMAB
     Indication: BREAST CANCER
     Route: 042
     Dates: start: 20181213, end: 20190103

REACTIONS (4)
  - Dyspnoea [Unknown]
  - Pruritus [Unknown]
  - Seizure [Unknown]
  - Rash [Unknown]
